FAERS Safety Report 15067373 (Version 2)
Quarter: 2018Q3

REPORT INFORMATION
  Report Type: Spontaneous
  Country: US (occurrence: US)
  Receive Date: 20180626
  Receipt Date: 20180710
  Transmission Date: 20181010
  Serious: Yes (Hospitalization, Other)
  Sender: FDA-Public Use
  Company Number: US-SUPERNUS PHARMACEUTICALS, INC.-2018SUP00206

PATIENT
  Age: 29 Year
  Sex: Female
  Weight: 47.17 kg

DRUGS (8)
  1. TROKENDI XR [Suspect]
     Active Substance: TOPIRAMATE
     Dosage: 100 MG, 1X/DAY IN THE MORNING
     Route: 048
     Dates: end: 20180622
  2. LAMICTAL [Suspect]
     Active Substance: LAMOTRIGINE
     Dosage: 225 MG, 2X/DAY
     Dates: start: 201804, end: 20180531
  3. IMITREX [Concomitant]
     Active Substance: SUMATRIPTAN SUCCINATE
  4. TROKENDI XR [Suspect]
     Active Substance: TOPIRAMATE
     Indication: EPILEPSY
     Dosage: 200 MG, 1X/DAY AT NIGHT
     Route: 048
     Dates: end: 20180622
  5. KLONOPIN [Concomitant]
     Active Substance: CLONAZEPAM
  6. ZOFRAN [Concomitant]
     Active Substance: ONDANSETRON HYDROCHLORIDE
  7. TROKENDI XR [Suspect]
     Active Substance: TOPIRAMATE
     Dosage: 200 MG, 2X/DAY
     Dates: start: 20180622
  8. LAMICTAL [Suspect]
     Active Substance: LAMOTRIGINE
     Dosage: 150 MG, 2X/DAY
     Dates: end: 201804

REACTIONS (5)
  - Flatulence [Recovering/Resolving]
  - Drug effect decreased [Unknown]
  - Seizure [Unknown]
  - Colitis [Recovering/Resolving]
  - Nausea [Recovering/Resolving]

NARRATIVE: CASE EVENT DATE: 2018
